FAERS Safety Report 13782438 (Version 1)
Quarter: 2017Q3

REPORT INFORMATION
  Report Type: Spontaneous
  Country: US (occurrence: US)
  Receive Date: 20170724
  Receipt Date: 20170724
  Transmission Date: 20171127
  Serious: No
  Sender: FDA-Public Use
  Company Number: US-PRINSTON PHARMACEUTICAL INC.-2016PRN00364

PATIENT
  Age: 84 Year
  Sex: Female
  Weight: 72.56 kg

DRUGS (6)
  1. LOSARTAN POTASSIUM. [Suspect]
     Active Substance: LOSARTAN POTASSIUM
     Indication: HYPERTENSION
     Dosage: 50 MG, 1X/DAY
     Route: 048
     Dates: start: 20161119
  2. OMEGA 3 FISH OIL [Concomitant]
     Active Substance: FISH OIL\OMEGA-3 FATTY ACIDS
     Dosage: 1 DOSAGE UNITS, 2X/DAY
  3. STRESSTAB [Concomitant]
     Dosage: 1 TABLETS, 1X/DAY
  4. OSCAL [Concomitant]
     Active Substance: CALCIUM CARBONATE
     Dosage: 1 DOSAGE UNITS, 2X/DAY
  5. ASPIRIN. [Concomitant]
     Active Substance: ASPIRIN
     Dosage: 81 MG, 1X/DAY
  6. COQ10 [Concomitant]
     Active Substance: UBIDECARENONE
     Dosage: 1 DOSAGE UNITS, 2X/DAY

REACTIONS (4)
  - Feeling abnormal [Recovered/Resolved]
  - Fatigue [Not Recovered/Not Resolved]
  - Myalgia [Not Recovered/Not Resolved]
  - Nasopharyngitis [Not Recovered/Not Resolved]

NARRATIVE: CASE EVENT DATE: 2016
